FAERS Safety Report 18336235 (Version 1)
Quarter: 2020Q4

REPORT INFORMATION
  Report Type: Spontaneous
  Country: KR (occurrence: KR)
  Receive Date: 20201001
  Receipt Date: 20201001
  Transmission Date: 20210113
  Serious: Yes (Other)
  Sender: FDA-Public Use
  Company Number: KR-JNJFOC-20200940140

PATIENT
  Age: 42 Year
  Sex: Female

DRUGS (1)
  1. PARACETAMOL [Suspect]
     Active Substance: ACETAMINOPHEN
     Indication: PRODUCT USED FOR UNKNOWN INDICATION
     Dosage: 14 TABLETS
     Route: 065

REACTIONS (4)
  - Intentional overdose [Unknown]
  - Dizziness [Recovered/Resolved]
  - Suicide attempt [Unknown]
  - Hepatic enzyme increased [Recovered/Resolved]
